FAERS Safety Report 22186405 (Version 5)
Quarter: 2024Q4

REPORT INFORMATION
  Report Type: Spontaneous
  Country: US (occurrence: US)
  Receive Date: 20230407
  Receipt Date: 20241227
  Transmission Date: 20250115
  Serious: Yes (Hospitalization, Disabling, Other)
  Sender: TORRENT PHARMA INC.
  Company Number: US-TORRENT-00012590

PATIENT
  Age: 30 Year
  Sex: Male
  Weight: 113 kg

DRUGS (14)
  1. ARIPIPRAZOLE [Suspect]
     Active Substance: ARIPIPRAZOLE
     Indication: Bipolar disorder
     Dosage: ONCE A DAY, QUANTITY: 30 TABLET(S), DOSE REDUCED ON 01-NOV-2022
     Route: 048
     Dates: start: 20221015, end: 20221117
  2. Albuterol 90 mcg/actuation inhaler [Concomitant]
     Indication: Wheezing
     Dosage: INHALE 2 PUFFS EVERY SIX (6) HOURS AS NEEDED
     Route: 055
     Dates: start: 20220805
  3. amoxicillin-clavulanate 875-125 mg [Concomitant]
     Indication: Product used for unknown indication
     Dosage: 1 TABLET BY MOUTH TWO (2) TIMES A DAY FOR 10 ?DAYS.
     Route: 048
     Dates: start: 20211213
  4. ANDROGEL 20.25 mg/1.25 gram (1.62 %) gel pump [Concomitant]
     Indication: Product used for unknown indication
     Dosage: APPLY 1 PUMP ONCE DAILY IN THE MORNING TO UPPER SHOULDER ARMS OR ABDOMEN AREAS FOR 30 DAYS
     Route: 065
     Dates: start: 20200924
  5. CEPHALEXIN [Concomitant]
     Active Substance: CEPHALEXIN
     Indication: Product used for unknown indication
     Dosage: 1 CAPSULE (500 MG TOTAL) BY MOUTH THREE (3) ?TIMES A DAY FOR 7 DAYS.
     Route: 048
     Dates: start: 20220324
  6. hydrocodone-chlorpheniramine polistirex 10-8 mg/5 mL ER suspension [Concomitant]
     Indication: Cough
     Dosage: 5 ML BY MOUTH EVERY TWELVE (12) HOURS AS NEEDED
     Route: 048
     Dates: start: 20211213
  7. LEVOCETIRIZINE [Concomitant]
     Active Substance: LEVOCETIRIZINE
     Indication: Product used for unknown indication
     Dosage: TAKE 1 TABLET (5 MG TOTAL) BY MOUTH EVERY EVENING
     Route: 048
     Dates: start: 20220805
  8. MYCOSTATIN [Concomitant]
     Active Substance: NYSTATIN
     Indication: Product used for unknown indication
     Dosage: APPLY 1 APPLICATION TOPICALLY TWO (2) TIMES A DAY.
     Route: 061
     Dates: start: 20211213
  9. promethazine-codeine 6.25-10 mg/5 mL syrup [Concomitant]
     Indication: Cough
     Dosage: 5 ML BY MOUTH EVERY EIGHT (8) HOURS AS NEEDED
     Route: 048
  10. promethazine-dextromethorphan 6.25-15 mg/ 5 mL syrup [Concomitant]
     Indication: Cough
     Dosage: TAKE 5 ML BY MOUTH FOUR (4) TIMES A DAY AS NEEDED OR UP TO 7 DAYS
     Route: 048
     Dates: start: 20211201
  11. PROPRANOLOL [Concomitant]
     Active Substance: PROPRANOLOL HYDROCHLORIDE
     Indication: Product used for unknown indication
     Dosage: 1 TABLET (10 MG TOTAL) BY MOUTH TWO (2) TIMES A ?DAY.
     Route: 048
     Dates: start: 20211213
  12. semaglutide 0.25 mg or 0.5 mg(2 mg/1.5 mL) Pnij [Concomitant]
     Indication: Product used for unknown indication
     Dosage: INJECT 0.25 MG UNDER THE SKIN EVERY SEVEN (7) DAYS.
     Route: 023
     Dates: start: 20200924
  13. SILDENAFIL [Concomitant]
     Active Substance: SILDENAFIL
     Indication: Erectile dysfunction
     Dosage: TAKE 1 TABLET (100 MG TOTAL) BY MOUTH DAILY AS NEEDED FOR UP TO 7 DAYS
     Route: 048
     Dates: start: 20220805
  14. VALACYCLOVIR [Concomitant]
     Active Substance: VALACYCLOVIR HYDROCHLORIDE
     Indication: Product used for unknown indication
     Dosage: 1 CAPLET BY MOUTH ONCE DAILY FOR 30 DAYS
     Route: 048
     Dates: start: 20200728

REACTIONS (39)
  - Product taste abnormal [Unknown]
  - Sperm concentration decreased [Unknown]
  - Loss of libido [Unknown]
  - Blood testosterone decreased [Unknown]
  - Muscular weakness [Unknown]
  - Muscle spasms [Unknown]
  - Headache [Unknown]
  - Vomiting [Unknown]
  - Hyperactive pharyngeal reflex [Unknown]
  - Condition aggravated [Unknown]
  - Mood swings [Unknown]
  - Anger [Unknown]
  - Emotional distress [Unknown]
  - Erectile dysfunction [Unknown]
  - Azoospermia [Unknown]
  - Weight increased [Unknown]
  - Gynaecomastia [Unknown]
  - Mental impairment [Unknown]
  - Speech disorder [Unknown]
  - Gait disturbance [Unknown]
  - Bradykinesia [Unknown]
  - Laziness [Unknown]
  - Self esteem decreased [Unknown]
  - Paranoia [Unknown]
  - Delusion [Unknown]
  - Insomnia [Unknown]
  - Memory impairment [Unknown]
  - Coordination abnormal [Unknown]
  - Tardive dyskinesia [Unknown]
  - Confusional state [Unknown]
  - Disorientation [Unknown]
  - Depression [Unknown]
  - Post-traumatic stress disorder [Unknown]
  - Hypertension [Unknown]
  - Diabetes mellitus [Unknown]
  - Myocardial infarction [Unknown]
  - Brain fog [Unknown]
  - Injury [Unknown]
  - Disturbance in attention [Unknown]

NARRATIVE: CASE EVENT DATE: 20210101
